FAERS Safety Report 4387448-9 (Version None)
Quarter: 2004Q2

REPORT INFORMATION
  Report Type: 
  Country: None (occurrence: None)
  Receive Date: 20040629
  Receipt Date: 20040629
  Transmission Date: 20050107
  Serious: Yes (Hospitalization)
  Sender: FDA-Public Use
  Company Number: None

PATIENT
  Age: 63 Year
  Sex: Male
  Weight: 116.1208 kg

DRUGS (2)
  1. TERAZOSIN HCL [Suspect]
     Indication: HYPERTENSION
     Dosage: 10 MG PO DAILY
     Route: 048
     Dates: start: 19990101, end: 20040101
  2. AVALIDE [Suspect]
     Indication: HYPERTENSION
     Dosage: 1 PO DAILY }20 YEARS AGO
     Route: 048

REACTIONS (2)
  - ASTHENIA [None]
  - BLOOD PRESSURE DECREASED [None]
